FAERS Safety Report 9193830 (Version 1)
Quarter: 2013Q1

REPORT INFORMATION
  Report Type: Spontaneous
  Country: US (occurrence: US)
  Receive Date: 20130327
  Receipt Date: 20130327
  Transmission Date: 20140127
  Serious: No
  Sender: FDA-Public Use
  Company Number: US-PFIZER INC-2013094602

PATIENT
  Sex: Male

DRUGS (2)
  1. SUTENT [Suspect]
     Dosage: 37.5 MG, FIRST CYCLE
  2. SUTENT [Suspect]
     Dosage: 37.5 MG AND 25 MG, ALTERNATING

REACTIONS (4)
  - Mental status changes [Unknown]
  - Amnesia [Unknown]
  - Aphasia [Unknown]
  - Fatigue [Unknown]
